FAERS Safety Report 7180578-8 (Version None)
Quarter: 2010Q4

REPORT INFORMATION
  Report Type: 
  Country: None (occurrence: None)
  Receive Date: 20101221
  Receipt Date: 20101220
  Transmission Date: 20110411
  Serious: Yes (Death, Other)
  Sender: FDA-Public Use
  Company Number: CH-ROXANE LABORATORIES, INC.-2010-RO-01711RO

PATIENT
  Age: 19 Year
  Sex: Male

DRUGS (11)
  1. CYCLOPHOSPHAMIDE [Suspect]
     Indication: BONE MARROW CONDITIONING REGIMEN
  2. ANTI-THYMOCYTE GLOBULIN NOS [Suspect]
     Indication: BONE MARROW CONDITIONING REGIMEN
  3. ETOPOSIDE [Suspect]
     Indication: BONE MARROW CONDITIONING REGIMEN
  4. LIPOSOMAL AMPHOTERICIN B [Suspect]
     Indication: BRONCHOPULMONARY ASPERGILLOSIS
  5. LIPOSOMAL AMPHOTERICIN B [Suspect]
     Indication: PNEUMONIA CYTOMEGALOVIRAL
  6. VORICONAZOLE [Suspect]
     Indication: BRONCHOPULMONARY ASPERGILLOSIS
  7. VORICONAZOLE [Suspect]
     Indication: PNEUMONIA CYTOMEGALOVIRAL
  8. GANCICLOVIR [Suspect]
     Indication: BRONCHOPULMONARY ASPERGILLOSIS
  9. GANCICLOVIR [Suspect]
     Indication: PNEUMONIA CYTOMEGALOVIRAL
  10. TRIMETHOPRIM-SULFAMETHOAZOLE [Suspect]
     Indication: ANTIFUNGAL PROPHYLAXIS
  11. ATOVAQUONE [Suspect]
     Indication: ANTIFUNGAL PROPHYLAXIS

REACTIONS (5)
  - BRONCHOPULMONARY ASPERGILLOSIS [None]
  - GRAFT VERSUS HOST DISEASE [None]
  - PANCYTOPENIA [None]
  - PNEUMONIA CYTOMEGALOVIRAL [None]
  - TOXOPLASMOSIS [None]
